FAERS Safety Report 14596225 (Version 2)
Quarter: 2025Q2

REPORT INFORMATION
  Report Type: Report from Study
  Country: DE (occurrence: DE)
  Receive Date: 20180303
  Receipt Date: 20250429
  Transmission Date: 20250717
  Serious: Yes (Other)
  Sender: AUROBINDO
  Company Number: DE-AUROBINDO-AUR-APL-2018-010605

PATIENT
  Age: 38 Year
  Sex: Female

DRUGS (5)
  1. TOPIRAMATE [Suspect]
     Active Substance: TOPIRAMATE
     Indication: Epilepsy
     Route: 065
  2. LEVETIRACETAM [Suspect]
     Active Substance: LEVETIRACETAM
     Indication: Epilepsy
     Route: 065
  3. CLOBAZAM [Suspect]
     Active Substance: CLOBAZAM
     Indication: Epilepsy
     Route: 065
  4. CARBAMAZEPINE [Suspect]
     Active Substance: CARBAMAZEPINE
     Indication: Epilepsy
     Route: 065
  5. VALPROATE SODIUM [Suspect]
     Active Substance: VALPROATE SODIUM
     Indication: Frontal lobe epilepsy
     Dosage: 1000 MILLIGRAM, ONCE A DAY
     Route: 065

REACTIONS (11)
  - Encephalopathy [Unknown]
  - Disturbance in attention [Recovering/Resolving]
  - Nausea [Unknown]
  - Seizure [Recovering/Resolving]
  - Asterixis [Recovering/Resolving]
  - Hyperammonaemia [Recovering/Resolving]
  - Bradyphrenia [Recovering/Resolving]
  - Gait disturbance [Recovering/Resolving]
  - Fall [Recovering/Resolving]
  - Ataxia [Recovering/Resolving]
  - Vomiting [Unknown]
